FAERS Safety Report 4707287-6 (Version None)
Quarter: 2005Q3

REPORT INFORMATION
  Report Type: 
  Country: None (occurrence: None)
  Receive Date: 20050701
  Receipt Date: 20050701
  Transmission Date: 20060218
  Serious: Yes (Life-Threatening, Hospitalization, Disabling, Congenital Anomaly)
  Sender: FDA-Public Use
  Company Number: None

PATIENT
  Age: 31 Year
  Sex: Male
  Weight: 61.2356 kg

DRUGS (2)
  1. PAXIL [Suspect]
     Indication: PANIC ATTACK
     Dosage: 12.5 MG 1 A DAY ORAL
     Route: 048
  2. PAROXETINE HCL [Suspect]
     Dosage: 20 MG 1 A DAY ORAL
     Route: 048

REACTIONS (10)
  - AGGRESSION [None]
  - DEPRESSION [None]
  - ECONOMIC PROBLEM [None]
  - FEELING ABNORMAL [None]
  - HEADACHE [None]
  - INSOMNIA [None]
  - MEMORY IMPAIRMENT [None]
  - SUICIDAL IDEATION [None]
  - UNEMPLOYMENT [None]
  - WEIGHT INCREASED [None]
